FAERS Safety Report 9422542 (Version 1)
Quarter: 2013Q3

REPORT INFORMATION
  Report Type: Spontaneous
  Country: GB (occurrence: GB)
  Receive Date: 20130726
  Receipt Date: 20130726
  Transmission Date: 20140515
  Serious: Yes (Disabling)
  Sender: FDA-Public Use
  Company Number: GB-SANOFI-AVENTIS-2013SA073455

PATIENT
  Age: 72 Year
  Sex: Male

DRUGS (4)
  1. AFLIBERCEPT [Suspect]
     Indication: COLORECTAL CANCER METASTATIC
     Route: 042
  2. METOCLOPRAMIDE [Concomitant]
  3. CHLORHEXIDINE [Concomitant]
  4. DIORALYTE [Concomitant]

REACTIONS (1)
  - Proctalgia [Recovered/Resolved]
